FAERS Safety Report 15807226 (Version 2)
Quarter: 2019Q1

REPORT INFORMATION
  Report Type: Spontaneous
  Country: JP (occurrence: JP)
  Receive Date: 20190110
  Receipt Date: 20190312
  Transmission Date: 20190417
  Serious: Yes (Life-Threatening, Hospitalization, Other)
  Sender: FDA-Public Use
  Company Number: JP-ROCHE-2243435

PATIENT
  Age: 66 Year
  Sex: Male

DRUGS (12)
  1. XOFLUZA [Suspect]
     Active Substance: BALOXAVIR MARBOXIL
     Indication: INFLUENZA
     Route: 048
     Dates: start: 20190107, end: 20190107
  2. CELECOX [Concomitant]
     Active Substance: CELECOXIB
     Route: 065
     Dates: start: 20181226
  3. TAURINE [Concomitant]
     Active Substance: TAURINE
     Route: 048
     Dates: start: 20181226
  4. TEPRENONE [Concomitant]
     Active Substance: TEPRENONE
     Route: 048
     Dates: start: 20181226
  5. AROTINOLOL HYDROCHLORIDE [Concomitant]
     Active Substance: AROTINOLOL HYDROCHLORIDE
     Route: 048
     Dates: start: 20181226
  6. MEXILETINE HYDROCHLORIDE. [Concomitant]
     Active Substance: MEXILETINE HYDROCHLORIDE
  7. DICLOFENAC SODIUM. [Concomitant]
     Active Substance: DICLOFENAC SODIUM
  8. AMBROXOL HYDROCHLORIDE [Concomitant]
     Active Substance: AMBROXOL HYDROCHLORIDE
     Route: 048
     Dates: start: 20181226
  9. BEZAFIBRATE [Concomitant]
     Active Substance: BEZAFIBRATE
     Route: 065
     Dates: start: 20181226
  10. PL [Concomitant]
     Active Substance: ACETAMINOPHEN\CAFFEINE\PROMETHAZINE\SALICYLAMIDE
     Route: 065
  11. MOHRUS TAPE L [Concomitant]
     Active Substance: KETOPROFEN
     Route: 062
     Dates: start: 20181226
  12. HEMOPORISON [Concomitant]
     Route: 065
     Dates: start: 20181226

REACTIONS (3)
  - Altered state of consciousness [Recovering/Resolving]
  - Pneumonia [Unknown]
  - Blood pressure decreased [Recovered/Resolved]

NARRATIVE: CASE EVENT DATE: 20190107
